FAERS Safety Report 8185146-7 (Version None)
Quarter: 2012Q1

REPORT INFORMATION
  Report Type: 
  Country: None (occurrence: None)
  Receive Date: 20120305
  Receipt Date: 20120302
  Transmission Date: 20120608
  Serious: Yes (Other)
  Sender: FDA-Public Use
  Company Number: US-PFIZER INC-2012056946

PATIENT
  Sex: Female

DRUGS (3)
  1. NAPROXEN SODIUM [Suspect]
     Dosage: UNK
  2. METHOTREXATE SODIUM [Suspect]
     Dosage: UNK
  3. CELEBREX [Suspect]
     Dosage: ONE, EVERY OTHER DAY

REACTIONS (6)
  - PALPITATIONS [None]
  - INSOMNIA [None]
  - PAIN [None]
  - ABDOMINAL DISCOMFORT [None]
  - ULCER HAEMORRHAGE [None]
  - WEIGHT INCREASED [None]
